FAERS Safety Report 6596229-7 (Version None)
Quarter: 2010Q1

REPORT INFORMATION
  Report Type: 
  Country: None (occurrence: None)
  Receive Date: 20100219
  Receipt Date: 20100219
  Transmission Date: 20100710
  Serious: Yes (Hospitalization)
  Sender: FDA-Public Use
  Company Number: None

PATIENT
  Sex: Male
  Weight: 103.2 kg

DRUGS (2)
  1. CISPLATIN [Suspect]
     Dosage: 178 MG
  2. TAXOTERE [Suspect]
     Dosage: 178 MG

REACTIONS (9)
  - ATRIAL FIBRILLATION [None]
  - DIARRHOEA [None]
  - DYSPNOEA [None]
  - HYPOTENSION [None]
  - NAUSEA [None]
  - NEUTROPENIA [None]
  - ORTHOPNOEA [None]
  - PYREXIA [None]
  - SINUS TACHYCARDIA [None]
